FAERS Safety Report 20417542 (Version 9)
Quarter: 2023Q1

REPORT INFORMATION
  Report Type: Report from Study
  Country: IL (occurrence: IL)
  Receive Date: 20220202
  Receipt Date: 20230330
  Transmission Date: 20230418
  Serious: Yes (Death, Hospitalization, Other)
  Sender: FDA-Public Use
  Company Number: IL-ABBVIE-22K-082-4257717-00

PATIENT
  Age: 90 Year
  Sex: Female
  Weight: 43 kg

DRUGS (19)
  1. VENETOCLAX [Suspect]
     Active Substance: VENETOCLAX
     Indication: Acute myeloid leukaemia
     Dosage: RAMP UP
     Route: 048
     Dates: start: 20211107, end: 20211107
  2. VENETOCLAX [Suspect]
     Active Substance: VENETOCLAX
     Indication: Acute myeloid leukaemia
     Dosage: RAMP UP
     Route: 048
     Dates: start: 20211108, end: 20211108
  3. VENETOCLAX [Suspect]
     Active Substance: VENETOCLAX
     Indication: Acute myeloid leukaemia
     Route: 048
     Dates: start: 20211109, end: 20211130
  4. AZACITIDINE [Suspect]
     Active Substance: AZACITIDINE
     Indication: Acute myeloid leukaemia
     Dosage: CYCLE 1
     Route: 058
     Dates: start: 20211107, end: 20211113
  5. ALLOPURINOL [Concomitant]
     Active Substance: ALLOPURINOL
     Indication: Prophylaxis
     Route: 065
     Dates: start: 20211107, end: 20211205
  6. ELIQUIS [Concomitant]
     Active Substance: APIXABAN
     Indication: Atrial fibrillation
     Route: 065
     Dates: start: 20190312, end: 20211205
  7. FORTEO [Concomitant]
     Active Substance: TERIPARATIDE
     Indication: Hypothyroidism
     Route: 065
     Dates: start: 20190720, end: 20211205
  8. Profex [Concomitant]
     Indication: Arrhythmia prophylaxis
     Route: 065
     Dates: start: 20190312, end: 20211205
  9. EPOETIN BETA [Concomitant]
     Active Substance: ERYTHROPOIETIN
     Indication: Anaemia
     Route: 065
     Dates: start: 20190312, end: 20211205
  10. SIMVASTATINX [Concomitant]
     Indication: Hyperlipidaemia
     Route: 065
     Dates: start: 20190312, end: 20211205
  11. VITAMIN D3 [Concomitant]
     Active Substance: CHOLECALCIFEROL
     Indication: Nutritional supplementation
     Route: 065
     Dates: start: 20190312, end: 20211205
  12. PIPERACILLIN SODIUM\TAZOBACTAM SODIUM [Concomitant]
     Active Substance: PIPERACILLIN SODIUM\TAZOBACTAM SODIUM
     Indication: Antibiotic therapy
     Dates: start: 20211205, end: 20211205
  13. HUMAN RED BLOOD CELL [Concomitant]
     Active Substance: HUMAN RED BLOOD CELL
     Indication: Product used for unknown indication
     Route: 065
     Dates: start: 20210830, end: 20210930
  14. HUMAN RED BLOOD CELL [Concomitant]
     Active Substance: HUMAN RED BLOOD CELL
     Indication: Product used for unknown indication
     Route: 065
     Dates: start: 20211013, end: 20211013
  15. HUMAN RED BLOOD CELL [Concomitant]
     Active Substance: HUMAN RED BLOOD CELL
     Indication: Product used for unknown indication
     Route: 065
     Dates: start: 20211021, end: 20211021
  16. HUMAN RED BLOOD CELL [Concomitant]
     Active Substance: HUMAN RED BLOOD CELL
     Indication: Product used for unknown indication
     Route: 065
     Dates: start: 20211110, end: 20211110
  17. HUMAN RED BLOOD CELL [Concomitant]
     Active Substance: HUMAN RED BLOOD CELL
     Indication: Product used for unknown indication
     Route: 065
     Dates: start: 20211111, end: 20211111
  18. HUMAN RED BLOOD CELL [Concomitant]
     Active Substance: HUMAN RED BLOOD CELL
     Indication: Product used for unknown indication
     Route: 065
     Dates: start: 20211124, end: 20211124
  19. HUMAN RED BLOOD CELL [Concomitant]
     Active Substance: HUMAN RED BLOOD CELL
     Indication: Product used for unknown indication
     Route: 065
     Dates: start: 20211205, end: 20211205

REACTIONS (7)
  - Neutropenia [Fatal]
  - Febrile neutropenia [Fatal]
  - Thrombocytopenia [Fatal]
  - Neutropenia [Fatal]
  - Thrombocytopenia [Recovered/Resolved with Sequelae]
  - Thrombocytopenia [Unknown]
  - Pneumonia [Recovered/Resolved]

NARRATIVE: CASE EVENT DATE: 20211111
